FAERS Safety Report 5160520-1 (Version None)
Quarter: 2006Q4

REPORT INFORMATION
  Report Type: 
  Country: None (occurrence: None)
  Receive Date: 20061129
  Receipt Date: 20061121
  Transmission Date: 20070319
  Serious: Yes (Hospitalization)
  Sender: FDA-Public Use
  Company Number: US-ROXANE LABORATORIES, INC-2006-DE-06196GD

PATIENT
  Age: 66 Year
  Sex: Female

DRUGS (13)
  1. CALCIUM CARBONATE [Suspect]
     Route: 048
  2. FUROSEMIDE [Suspect]
  3. CLONIDINE [Concomitant]
  4. NIFEDIPINE [Concomitant]
  5. ENALAPRIL MALEATE [Concomitant]
  6. LABETALOL HCL [Concomitant]
  7. LEVOTHYROXINE SODIUM [Concomitant]
  8. FOLIC ACID [Concomitant]
  9. MULTI-VITAMIN [Concomitant]
  10. ESTROGEN-PROGESTERONE [Concomitant]
  11. FERROUS SULFATE TAB [Concomitant]
  12. INSULIN [Concomitant]
  13. EPOGEN [Concomitant]

REACTIONS (2)
  - HYPOCALCAEMIA [None]
  - MILK-ALKALI SYNDROME [None]
